FAERS Safety Report 10684577 (Version 3)
Quarter: 2015Q1

REPORT INFORMATION
  Report Type: Spontaneous
  Country: JP (occurrence: None)
  Receive Date: 20141229
  Receipt Date: 20150212
  Transmission Date: 20150720
  Serious: Yes (Hospitalization)
  Sender: FDA-Public Use
  Company Number: 2014MPI00888

PATIENT
  Age: 74 Year
  Sex: Male
  Weight: 76.7 kg

DRUGS (3)
  1. NSAID^S [Concomitant]
     Active Substance: UNSPECIFIED INGREDIENT
  2. ADCETRIS [Suspect]
     Active Substance: BRENTUXIMAB VEDOTIN
     Indication: HODGKIN^S DISEASE
     Dosage: Q21D
     Route: 041
     Dates: start: 20140701
  3. ANTIHISTAMINES [Concomitant]
     Active Substance: ANTIHISTAMINES NOS

REACTIONS (5)
  - Pyrexia [None]
  - Neuropathy peripheral [None]
  - Alopecia [None]
  - Infusion related reaction [None]
  - Melaena [None]

NARRATIVE: CASE EVENT DATE: 20140701
